FAERS Safety Report 7665040-8 (Version None)
Quarter: 2011Q3

REPORT INFORMATION
  Report Type: 
  Country: None (occurrence: None)
  Receive Date: 20110806
  Receipt Date: 20110215
  Transmission Date: 20111222
  Serious: No
  Sender: FDA-Public Use
  Company Number: US-ABBOTT-11P-163-0705359-00

PATIENT
  Sex: Female
  Weight: 95.34 kg

DRUGS (5)
  1. SYNTHROID [Concomitant]
     Indication: HYPOTHYROIDISM
  2. NIASPAN [Suspect]
     Indication: BLOOD CHOLESTEROL
     Dates: start: 20100401, end: 20110210
  3. FISH OIL [Concomitant]
     Indication: PRODUCT USED FOR UNKNOWN INDICATION
  4. NIASPAN [Suspect]
  5. NIASPAN [Suspect]
     Indication: BLOOD CHOLESTEROL

REACTIONS (6)
  - SKIN BURNING SENSATION [None]
  - DIZZINESS [None]
  - VOMITING [None]
  - FLUSHING [None]
  - DIARRHOEA [None]
  - BLOOD PRESSURE INCREASED [None]
